FAERS Safety Report 21800504 (Version 1)
Quarter: 2022Q4

REPORT INFORMATION
  Report Type: Spontaneous
  Country: CA (occurrence: CA)
  Receive Date: 20221230
  Receipt Date: 20221230
  Transmission Date: 20230112
  Serious: Yes (Other)
  Sender: FDA-Public Use
  Company Number: CA-TEVA-2022-CA-2840712

PATIENT
  Age: 87 Year
  Sex: Female

DRUGS (4)
  1. QUETIAPINE FUMARATE [Suspect]
     Active Substance: QUETIAPINE FUMARATE
     Indication: Product used for unknown indication
     Route: 048
  2. ARICEPT [Suspect]
     Active Substance: DONEPEZIL HYDROCHLORIDE
     Indication: Dementia
     Dosage: 2.5 MILLIGRAM DAILY;
     Route: 048
  3. TOZINAMERAN [Concomitant]
     Active Substance: TOZINAMERAN
     Indication: Product used for unknown indication
     Route: 030
  4. VENLAFAXINE HYDROCHLORIDE [Concomitant]
     Active Substance: VENLAFAXINE HYDROCHLORIDE
     Indication: Product used for unknown indication

REACTIONS (5)
  - Hypertension [Unknown]
  - Memory impairment [Unknown]
  - Paranoia [Unknown]
  - Pulmonary thrombosis [Unknown]
  - Drug ineffective [Unknown]
